FAERS Safety Report 8912959 (Version 1)
Quarter: 2012Q4

REPORT INFORMATION
  Report Type: 
  Country: US (occurrence: US)
  Receive Date: 20121116
  Receipt Date: 20121116
  Transmission Date: 20130627
  Serious: Yes (Death, Other)
  Sender: FDA-Public Use
  Company Number: US-CELGENEUS-163-21880-12100680

PATIENT
  Sex: Male

DRUGS (2)
  1. REVLIMID [Suspect]
     Indication: MYELODYSPLASIA
     Dosage: 10 Milligram
     Route: 048
     Dates: start: 201007
  2. REVLIMID [Suspect]
     Dosage: 10 Milligram
     Route: 048
     Dates: start: 201104

REACTIONS (3)
  - Myelodysplastic syndrome [Fatal]
  - Platelet count decreased [Unknown]
  - Neutropenic sepsis [Unknown]
